FAERS Safety Report 11205722 (Version 1)
Quarter: 2015Q2

REPORT INFORMATION
  Report Type: Spontaneous
  Country: US (occurrence: None)
  Receive Date: 20150618
  Receipt Date: 20150618
  Transmission Date: 20150821
  Serious: Yes (Hospitalization)
  Sender: FDA-Public Use
  Company Number: None

PATIENT
  Age: 55 Year
  Sex: Male
  Weight: 76.75 kg

DRUGS (15)
  1. MIRALAX [Concomitant]
     Active Substance: POLYETHYLENE GLYCOL 3350
  2. ASPIRIN. [Concomitant]
     Active Substance: ASPIRIN
  3. PAROXETINE [Concomitant]
     Active Substance: PAROXETINE\PAROXETINE HYDROCHLORIDE
  4. REVLIMID [Concomitant]
     Active Substance: LENALIDOMIDE
  5. LACTULOSE. [Concomitant]
     Active Substance: LACTULOSE
  6. PATANOL (OLOPATADINE HCL) [Concomitant]
  7. FENTANYL. [Concomitant]
     Active Substance: FENTANYL
  8. ACYCLOVIR (ZOVIRAX) [Concomitant]
  9. DOCUSATE SODIUM. [Concomitant]
     Active Substance: DOCUSATE SODIUM
  10. ONDANSETRON [Concomitant]
     Active Substance: ONDANSETRON
  11. HARVONI [Suspect]
     Active Substance: LEDIPASVIR\SOFOSBUVIR
     Indication: HEPATITIS C
     Dosage: THERAPY DATE?11/16/2015-5/13/2015
     Route: 048
     Dates: end: 20150513
  12. BACLOFEN. [Concomitant]
     Active Substance: BACLOFEN
  13. SENOKOT-A (SENNOSIDES/DOCUSATE SODIUM) [Concomitant]
  14. VITAMIN B COMPLEX [Concomitant]
     Active Substance: CYANOCOBALAMIN\DEXPANTHENOL\NIACINAMIDE\PYRIDOXINE HYDROCHLORIDE\RIBOFLAVIN 5^-PHOSPHATE SODIUM\THIAMINE HYDROCHLORIDE\VITAMIN B COMPLEX
  15. MILK OF MAGNESIA [Concomitant]
     Active Substance: MAGNESIUM HYDROXIDE

REACTIONS (1)
  - Back pain [None]

NARRATIVE: CASE EVENT DATE: 20150503
